FAERS Safety Report 17083635 (Version 1)
Quarter: 2019Q4

REPORT INFORMATION
  Report Type: Spontaneous
  Country: CH (occurrence: CH)
  Receive Date: 20191127
  Receipt Date: 20191127
  Transmission Date: 20200122
  Serious: Yes (Other)
  Sender: FDA-Public Use
  Company Number: CH-TEVA-716542ISR

PATIENT
  Sex: Female

DRUGS (1)
  1. PREGABALIN 200MG [Suspect]
     Active Substance: PREGABALIN
     Dosage: 400 MILLIGRAM DAILY; THE SUSPECT MEDICATION WAS TAKEN BY THE FATHER
     Route: 065

REACTIONS (2)
  - Paternal exposure timing unspecified [Unknown]
  - Abortion [Unknown]
